FAERS Safety Report 6373041-5 (Version None)
Quarter: 2009Q3

REPORT INFORMATION
  Report Type: 
  Country: None (occurrence: None)
  Receive Date: 20090924
  Receipt Date: 20090720
  Transmission Date: 20100115
  Serious: No
  Sender: FDA-Public Use
  Company Number: US-ASTRAZENECA-2009SE05366

PATIENT
  Age: 52 Year
  Sex: Female
  Weight: 70.3 kg

DRUGS (6)
  1. SEROQUEL [Suspect]
     Indication: BIPOLAR DISORDER
     Route: 048
  2. SEROQUEL [Suspect]
     Route: 048
  3. METOPROLOL TARTRATE [Concomitant]
     Indication: TACHYCARDIA
  4. LITHIUM [Concomitant]
  5. VITAMINS [Concomitant]
  6. ASPIRIN [Concomitant]

REACTIONS (2)
  - ABDOMINAL DISCOMFORT [None]
  - TACHYCARDIA [None]
